FAERS Safety Report 11878743 (Version 1)
Quarter: 2015Q4

REPORT INFORMATION
  Report Type: Report from Study
  Country: FR (occurrence: FR)
  Receive Date: 20151230
  Receipt Date: 20151230
  Transmission Date: 20160305
  Serious: Yes (Other)
  Sender: FDA-Public Use
  Company Number: FR-VIIV HEALTHCARE LIMITED-FR2015GSK183206

PATIENT
  Sex: Male

DRUGS (3)
  1. RALTEGRAVIR. [Suspect]
     Active Substance: RALTEGRAVIR
     Dosage: UNK
     Route: 065
     Dates: start: 201002, end: 201002
  2. DOLUTEGRAVIR [Suspect]
     Active Substance: DOLUTEGRAVIR
     Indication: HIV INFECTION
     Dosage: UNK
     Route: 065
     Dates: start: 2011, end: 201408
  3. RALTEGRAVIR. [Suspect]
     Active Substance: RALTEGRAVIR
     Indication: HIV INFECTION
     Dosage: UNK
     Route: 065
     Dates: start: 200701, end: 200804

REACTIONS (5)
  - Viral mutation identified [Unknown]
  - CD4 lymphocytes decreased [Recovering/Resolving]
  - Blood HIV RNA decreased [Unknown]
  - Drug resistance [Unknown]
  - Blood HIV RNA increased [Unknown]

NARRATIVE: CASE EVENT DATE: 2011
